FAERS Safety Report 11685867 (Version 4)
Quarter: 2016Q1

REPORT INFORMATION
  Report Type: Report from Study
  Country: MX (occurrence: MX)
  Receive Date: 20151030
  Receipt Date: 20160114
  Transmission Date: 20160525
  Serious: Yes (Death, Other)
  Sender: FDA-Public Use
  Company Number: MX-BAYER-2015-447629

PATIENT
  Age: 72 Year
  Sex: Male
  Weight: 48 kg

DRUGS (1)
  1. STIVARGA [Suspect]
     Active Substance: REGORAFENIB
     Indication: COLON CANCER
     Dosage: 40 MG, TID
     Route: 048
     Dates: start: 20151008

REACTIONS (9)
  - Oedema peripheral [Not Recovered/Not Resolved]
  - Cardio-respiratory arrest [Fatal]
  - Hepatitis [Not Recovered/Not Resolved]
  - Rash [Not Recovered/Not Resolved]
  - Disease complication [Fatal]
  - Colon cancer [Fatal]
  - Hepatic pain [Not Recovered/Not Resolved]
  - Limb discomfort [Not Recovered/Not Resolved]
  - Palmar-plantar erythrodysaesthesia syndrome [Not Recovered/Not Resolved]

NARRATIVE: CASE EVENT DATE: 20151012
